FAERS Safety Report 7722987-1 (Version None)
Quarter: 2011Q3

REPORT INFORMATION
  Report Type: 
  Country: None (occurrence: None)
  Receive Date: 20110901
  Receipt Date: 20110823
  Transmission Date: 20111222
  Serious: Yes (Hospitalization)
  Sender: FDA-Public Use
  Company Number: NL-JNJFOC-20110810116

PATIENT
  Sex: Male
  Weight: 90 kg

DRUGS (3)
  1. RISPERDAL [Suspect]
     Indication: SCHIZOPHRENIA
     Route: 065
     Dates: start: 20100303, end: 20110807
  2. AKINETON [Concomitant]
     Route: 065
     Dates: start: 20100303, end: 20110807
  3. ATIVAN [Concomitant]
     Route: 065
     Dates: start: 20100703, end: 20110807

REACTIONS (1)
  - PULMONARY EMBOLISM [None]
